FAERS Safety Report 22183263 (Version 1)
Quarter: 2023Q2

REPORT INFORMATION
  Report Type: Spontaneous
  Country: US (occurrence: US)
  Receive Date: 20230406
  Receipt Date: 20230406
  Transmission Date: 20230722
  Serious: No
  Sender: FDA-Public Use
  Company Number: US-Evolus, Inc.-2022EV000293

PATIENT
  Age: 62 Year
  Sex: Female

DRUGS (3)
  1. JEUVEAU [Suspect]
     Active Substance: PRABOTULINUMTOXINA-XVFS
     Indication: Skin wrinkling
     Dosage: FOREHEAD 20 UNITS, GLABELLA 20 UNITS, CROW^S FEET 12 UNITS PER SIDE (24 UNITS TOTAL), LIP FLIP 8 UNI
     Dates: start: 20220829, end: 20220829
  2. JEUVEAU [Suspect]
     Active Substance: PRABOTULINUMTOXINA-XVFS
     Indication: Skin wrinkling
  3. JEUVEAU [Suspect]
     Active Substance: PRABOTULINUMTOXINA-XVFS
     Indication: Product used for unknown indication

REACTIONS (4)
  - Injection site swelling [Recovering/Resolving]
  - Injection site hypoaesthesia [Recovering/Resolving]
  - Injection site bruising [Recovering/Resolving]
  - Off label use [Recovered/Resolved]

NARRATIVE: CASE EVENT DATE: 20220829
